FAERS Safety Report 16617500 (Version 2)
Quarter: 2019Q3

REPORT INFORMATION
  Report Type: Spontaneous
  Country: CA (occurrence: CA)
  Receive Date: 20190723
  Receipt Date: 20190801
  Transmission Date: 20191004
  Serious: Yes (Death, Life-Threatening, Hospitalization)
  Sender: FDA-Public Use
  Company Number: CA-IGSA-SR10008755

PATIENT
  Age: 71 Year
  Sex: Male
  Weight: 120 kg

DRUGS (4)
  1. IGIVNEX [Suspect]
     Active Substance: HUMAN IMMUNOGLOBULIN G
     Indication: MYASTHENIA GRAVIS
     Dosage: 80 G, UNK
     Route: 042
     Dates: start: 20190705, end: 20190705
  2. TYLENOL [Concomitant]
     Active Substance: ACETAMINOPHEN
     Indication: PREMEDICATION
     Dosage: 975 MG, UNK
     Route: 048
     Dates: start: 20190705, end: 20190705
  3. PREDNISONE. [Concomitant]
     Active Substance: PREDNISONE
     Dosage: 20 MG, QD
     Route: 048
  4. GAMUNEX [Suspect]
     Active Substance: HUMAN IMMUNOGLOBULIN G
     Indication: MYASTHENIA GRAVIS
     Dosage: 3 G, UNK
     Route: 042
     Dates: start: 20190705, end: 20190705

REACTIONS (15)
  - Tachypnoea [Fatal]
  - Wheezing [Fatal]
  - Cyanosis [Fatal]
  - Anxiety [Fatal]
  - Nausea [Fatal]
  - Stridor [Fatal]
  - Dyspnoea [Fatal]
  - Swollen tongue [Fatal]
  - Altered state of consciousness [Fatal]
  - Chills [Fatal]
  - Oedema [Fatal]
  - Cough [Fatal]
  - Hypoxia [Fatal]
  - Vomiting [Fatal]
  - Anaphylactic reaction [Fatal]

NARRATIVE: CASE EVENT DATE: 20190705
